FAERS Safety Report 6121296-4 (Version None)
Quarter: 2009Q1

REPORT INFORMATION
  Report Type: 
  Country: None (occurrence: None)
  Receive Date: 20090317
  Receipt Date: 20090311
  Transmission Date: 20090719
  Serious: Yes (Hospitalization, Other)
  Sender: FDA-Public Use
  Company Number: JP-ASTRAZENECA-2009AP01882

PATIENT
  Age: 63 Year
  Sex: Female

DRUGS (2)
  1. CRESTOR [Suspect]
     Indication: HYPERLIPIDAEMIA
     Dosage: DOSE UNKNOWN
     Route: 048
  2. DIURETICS [Concomitant]
     Indication: OEDEMA
     Dosage: DOSE UNKNOWN
     Route: 065

REACTIONS (2)
  - RENAL AMYLOIDOSIS [None]
  - RHABDOMYOLYSIS [None]
